FAERS Safety Report 23201973 (Version 1)
Quarter: 2023Q4

REPORT INFORMATION
  Report Type: Spontaneous
  Country: US (occurrence: None)
  Receive Date: 20231118
  Receipt Date: 20231118
  Transmission Date: 20240109
  Serious: Yes (Life-Threatening, Hospitalization)
  Sender: FDA-Public Use
  Company Number: None

PATIENT
  Age: 64 Year
  Sex: Male
  Weight: 92.25 kg

DRUGS (7)
  1. METHOTREXATE [Suspect]
     Active Substance: METHOTREXATE
     Indication: Rheumatoid arthritis
     Dosage: 7 TABLETS ONCE A WEEK ORAL?
     Route: 048
     Dates: start: 20230202, end: 20230925
  2. metoprolol tartrate 25 mg oral tablet [Concomitant]
  3. atorvastatin 80 mg oral tablet [Concomitant]
  4. lisinopril 5 mg oral tablet [Concomitant]
  5. Synthroid 137 mcg (0.137 mg) oral tablet [Concomitant]
  6. Vitamin B12 1000 mcg oral tablet [Concomitant]
  7. Multiple Vitamins oral tablet [Concomitant]

REACTIONS (3)
  - Increased tendency to bruise [None]
  - Pancytopenia [None]
  - Immune thrombocytopenia [None]

NARRATIVE: CASE EVENT DATE: 20230925
